FAERS Safety Report 6523468-3 (Version None)
Quarter: 2009Q4

REPORT INFORMATION
  Report Type: 
  Country: None (occurrence: None)
  Receive Date: 20091231
  Receipt Date: 20091218
  Transmission Date: 20100525
  Serious: Yes (Hospitalization)
  Sender: FDA-Public Use
  Company Number: PHHY2009JP58789

PATIENT
  Sex: Female

DRUGS (10)
  1. DIOVAN [Suspect]
     Indication: HYPERTENSION
     Dosage: 80 MG ONCE DAILY
     Route: 048
     Dates: start: 20070831, end: 20080212
  2. DIOVAN [Suspect]
     Dosage: 160 MG ONCE DAILY
     Route: 048
     Dates: start: 20081013, end: 20090728
  3. DIOVAN [Suspect]
     Dosage: 80 MG ONCE DAILY
     Route: 048
     Dates: start: 20090729
  4. NU-LOTAN [Concomitant]
     Indication: HYPERTENSION
     Dosage: 50 MG, UNK
     Route: 048
     Dates: start: 20070625, end: 20090830
  5. CONIEL [Concomitant]
     Indication: HYPERTENSION
     Dosage: 4 MG, UNK
     Route: 048
     Dates: start: 20071209, end: 20081128
  6. ADALAT CC [Concomitant]
     Indication: HYPERTENSION
     Dosage: 20 MG, UNK
     Route: 048
     Dates: start: 20081129
  7. ADALAT CC [Concomitant]
     Dosage: 40 MG, UNK
     Route: 048
     Dates: end: 20090629
  8. NORVASC [Concomitant]
     Indication: HYPERTENSION
     Dosage: 5 MG, UNK
     Route: 048
     Dates: start: 20090630
  9. THYRADIN [Concomitant]
     Dosage: 25 UG, UNK
     Route: 048
     Dates: start: 20081226
  10. THYRADIN [Concomitant]
     Dosage: 50 UG, UNK
     Route: 048

REACTIONS (3)
  - SALIVARY GLAND NEOPLASM [None]
  - THYROIDITIS CHRONIC [None]
  - TUMOUR EXCISION [None]
